FAERS Safety Report 6539326-4 (Version None)
Quarter: 2010Q1

REPORT INFORMATION
  Report Type: 
  Country: None (occurrence: None)
  Receive Date: 20100115
  Receipt Date: 20100106
  Transmission Date: 20100710
  Serious: Yes (Hospitalization)
  Sender: FDA-Public Use
  Company Number: US-ABBOTT-10P-163-0618019-00

PATIENT
  Sex: Male
  Weight: 79.45 kg

DRUGS (13)
  1. TRICOR [Suspect]
     Indication: BLOOD TRIGLYCERIDES INCREASED
     Route: 048
     Dates: start: 20090901, end: 20091101
  2. WARFARIN SODIUM [Suspect]
     Indication: CARDIAC PACEMAKER INSERTION
     Dosage: PER PT/INR
     Route: 048
  3. WARFARIN SODIUM [Suspect]
     Indication: HEART VALVE REPLACEMENT
  4. DIGOXIN [Concomitant]
     Indication: CARDIAC FAILURE CONGESTIVE
     Route: 048
  5. ISOSORBIDE MONO [Concomitant]
     Indication: CARDIAC FAILURE CONGESTIVE
     Route: 048
  6. FUROSEMIDE [Concomitant]
     Indication: CARDIAC FAILURE CONGESTIVE
     Route: 048
  7. GLIPIZIDE [Concomitant]
     Indication: DIABETES MELLITUS
     Dosage: 1/2 TABLET TWICE DAILY
     Route: 048
  8. CARVEDILOL [Concomitant]
     Indication: CARDIAC FAILURE CONGESTIVE
     Dosage: 1/2 TABLET TWICE DAILY
     Route: 048
  9. SIMVASTIN [Concomitant]
     Indication: BLOOD CHOLESTEROL INCREASED
     Dosage: 1/2 DAILY
     Route: 048
  10. VALSARTAN [Concomitant]
     Indication: CARDIAC FAILURE CONGESTIVE
     Route: 048
  11. VITAMIN B1 TAB [Concomitant]
     Indication: VITAMIN SUPPLEMENTATION
     Route: 048
  12. VITAMIN B6 [Concomitant]
     Indication: VITAMIN SUPPLEMENTATION
     Route: 048
  13. OXYCODONE HCL AND ACETAMINOPHEN [Concomitant]
     Indication: ARTHRALGIA
     Route: 048

REACTIONS (1)
  - RENAL DISORDER [None]
